FAERS Safety Report 23408745 (Version 1)
Quarter: 2024Q1

REPORT INFORMATION
  Report Type: Other
  Country: JP (occurrence: JP)
  Receive Date: 20240117
  Receipt Date: 20240117
  Transmission Date: 20240410
  Serious: Yes (Hospitalization)
  Sender: FDA-Public Use
  Company Number: JP-CHUGAI-2024000574

PATIENT
  Age: 59 Year
  Sex: Male

DRUGS (6)
  1. CELLCEPT [Suspect]
     Active Substance: MYCOPHENOLATE MOFETIL
     Indication: Immune-mediated cholangitis
     Dosage: 1500MG/DAY
     Route: 065
  2. PREDNISOLONE [Suspect]
     Active Substance: PREDNISOLONE
     Indication: Immune-mediated cholangitis
     Dosage: 40MG/DAY
     Route: 065
  3. PREDNISOLONE [Suspect]
     Active Substance: PREDNISOLONE
     Dosage: 60MG/DAY
     Route: 065
  4. PREDNISOLONE [Suspect]
     Active Substance: PREDNISOLONE
     Dosage: 30MG/DAY
     Route: 065
  5. PREDNISOLONE [Suspect]
     Active Substance: PREDNISOLONE
     Dosage: 12.5MG/DAY
     Route: 065
  6. PREDNISOLONE [Suspect]
     Active Substance: PREDNISOLONE
     Dosage: 5MG/DAY
     Route: 065

REACTIONS (2)
  - Biliary tract infection [Unknown]
  - Off label use [Unknown]
